FAERS Safety Report 10075486 (Version 2)
Quarter: 2014Q2

REPORT INFORMATION
  Report Type: Spontaneous
  Country: US (occurrence: US)
  Receive Date: 20140414
  Receipt Date: 20140430
  Transmission Date: 20141212
  Serious: No
  Sender: FDA-Public Use
  Company Number: US-JNJFOC-20140401724

PATIENT
  Sex: Male
  Weight: 69.85 kg

DRUGS (1)
  1. DURAGESIC [Suspect]
     Indication: PAIN
     Dosage: 100UG/HR + 50UG/HR
     Route: 062

REACTIONS (3)
  - Wrong technique in drug usage process [Unknown]
  - Incorrect product storage [Unknown]
  - Wrong technique in drug usage process [Unknown]
